FAERS Safety Report 18952546 (Version 3)
Quarter: 2021Q2

REPORT INFORMATION
  Report Type: Report from Study
  Country: US (occurrence: US)
  Receive Date: 20210301
  Receipt Date: 20210423
  Transmission Date: 20210717
  Serious: Yes (Other)
  Sender: FDA-Public Use
  Company Number: NVSC2021US040000

PATIENT
  Age: 78 Year
  Weight: 71.9 kg

DRUGS (1)
  1. ENTRESTO [Suspect]
     Active Substance: SACUBITRIL\VALSARTAN
     Indication: PRODUCT USED FOR UNKNOWN INDICATION
     Dosage: 50 MG (24.26 MG)
     Route: 065
     Dates: start: 20201201

REACTIONS (5)
  - Peripheral artery occlusion [Unknown]
  - Dehydration [Unknown]
  - Renal function test abnormal [Unknown]
  - Hypotension [Unknown]
  - Dizziness [Recovered/Resolved]

NARRATIVE: CASE EVENT DATE: 20210120
